FAERS Safety Report 8799579 (Version 2)
Quarter: 2012Q4

REPORT INFORMATION
  Report Type: Spontaneous
  Country: FR (occurrence: None)
  Receive Date: 20120914
  Receipt Date: 20121022
  Transmission Date: 20130627
  Serious: Yes (Hospitalization)
  Sender: FDA-Public Use
  Company Number: 2012-003275

PATIENT
  Age: 90 Year
  Sex: Female

DRUGS (9)
  1. ACTONEL [Suspect]
     Indication: OSTEOPOROSIS
     Dosage: 35 mg once weekly, oral
     Route: 048
     Dates: start: 2006, end: 201208
  2. DAFALGAN (PARACETAMOL) [Concomitant]
  3. CARDIAC THERAPY [Concomitant]
  4. ALL OTHER THERAPEUTIC PRODUCTS [Concomitant]
  5. OTHER OPHTHALMOLOGICALS [Concomitant]
  6. CALCIUM + VITAMIN D3 (CALCIUM, COLECALCIFEROL) [Concomitant]
  7. VISMED (HYALURONATE SODIUM) [Concomitant]
  8. MOPRAL (OMEPRAZOLE) [Concomitant]
  9. LOVENOX (ENOXAPARIN SODIUM) [Concomitant]

REACTIONS (29)
  - Swollen tongue [None]
  - Tongue discolouration [None]
  - Tongue injury [None]
  - Eye allergy [None]
  - Ocular hyperaemia [None]
  - Eye swelling [None]
  - Eye pain [None]
  - Photophobia [None]
  - Vision blurred [None]
  - Syncope [None]
  - Photophobia [None]
  - Vision blurred [None]
  - Chest pain [None]
  - Nausea [None]
  - Malaise [None]
  - Body height decreased [None]
  - Muscular weakness [None]
  - Musculoskeletal stiffness [None]
  - Gait disturbance [None]
  - Dyspnoea [None]
  - Dysphagia [None]
  - Dry throat [None]
  - Unevaluable event [None]
  - Pharyngeal oedema [None]
  - Gastrointestinal tract mucosal discolouration [None]
  - Abdominal pain upper [None]
  - Dysphonia [None]
  - Herpes virus infection [None]
  - Dry skin [None]
